FAERS Safety Report 7093295-X (Version None)
Quarter: 2010Q4

REPORT INFORMATION
  Report Type: 
  Country: None (occurrence: None)
  Receive Date: 20101110
  Receipt Date: 20100129
  Transmission Date: 20110411
  Serious: No
  Sender: FDA-Public Use
  Company Number: US-PFIZER INC-2010012768

PATIENT
  Sex: Male
  Weight: 104 kg

DRUGS (14)
  1. BEXTRA [Suspect]
     Indication: ARTHRITIS
     Dosage: UNK
     Route: 048
  2. LYRICA [Suspect]
     Indication: FIBROMYALGIA
     Dosage: 50 MG, 2X/DAY
     Route: 048
  3. LIDOCAINE [Concomitant]
     Indication: BACK PAIN
     Dosage: UNK
  4. MELOXICAM [Concomitant]
     Indication: ARTHRITIS
     Dosage: 50 MG, 1X/DAY
     Route: 048
  5. LISINOPRIL [Concomitant]
     Indication: MYOCARDIAL INFARCTION
     Dosage: 5 MG, 1X/DAY
     Route: 048
  6. LOPRESSOR [Concomitant]
     Indication: MYOCARDIAL INFARCTION
     Dosage: 50 MG, 2X/DAY
     Route: 048
  7. PLAVIX [Concomitant]
     Indication: ANTICOAGULANT THERAPY
     Dosage: 75 MG, 1X/DAY
     Route: 048
  8. ACETYLSALICYLIC ACID [Concomitant]
     Indication: ANTICOAGULANT THERAPY
     Dosage: 81 MG, 1X/DAY
     Route: 048
  9. ZOCOR [Concomitant]
     Indication: BLOOD CHOLESTEROL INCREASED
     Dosage: 20 MG, 1X/DAY
     Route: 048
  10. MICARDIS HCT [Concomitant]
     Indication: HYPERTENSION
     Dosage: [TELMISARTAN 40MG]/[HYDROCHLOROTHIAZIDE 12.5MG]
     Route: 048
  11. NEXIUM [Concomitant]
     Indication: GASTRIC DISORDER
     Dosage: 40 MG, 1X/DAY
     Route: 048
  12. METFORMIN [Concomitant]
     Indication: DIABETES MELLITUS
     Dosage: 1000 MG, 2X/DAY
     Route: 048
  13. TAMSULOSIN HYDROCHLORIDE [Concomitant]
     Indication: PROSTATOMEGALY
     Dosage: 0.4 MG, 1X/DAY
     Route: 048
  14. ZOLOFT [Concomitant]
     Dosage: 50 MG, 1X/DAY
     Route: 048

REACTIONS (3)
  - DRUG INEFFECTIVE [None]
  - HEART RATE INCREASED [None]
  - MEDICATION RESIDUE [None]
